FAERS Safety Report 5223652-5 (Version None)
Quarter: 2007Q1

REPORT INFORMATION
  Report Type: 
  Country: None (occurrence: None)
  Receive Date: 20070130
  Receipt Date: 20070125
  Transmission Date: 20070707
  Serious: Yes (Life-Threatening, Hospitalization)
  Sender: FDA-Public Use
  Company Number: US-SANOFI-SYNTHELABO-F01200700103

PATIENT
  Sex: Female
  Weight: 50.9 kg

DRUGS (5)
  1. CA/MG OR PLACEBO [Suspect]
     Route: 065
     Dates: start: 20070122, end: 20070122
  2. BEVACIZUMAB [Suspect]
     Route: 042
     Dates: start: 20070122, end: 20070122
  3. LEUCOVORIN CALCIUM [Suspect]
     Route: 042
     Dates: start: 20070122, end: 20070122
  4. FLUOROURACIL [Suspect]
     Route: 042
     Dates: start: 20070122, end: 20070122
  5. OXALIPLATIN [Suspect]
     Indication: COLORECTAL CANCER METASTATIC
     Route: 042
     Dates: start: 20070122, end: 20070122

REACTIONS (1)
  - MYOCARDIAL INFARCTION [None]
